FAERS Safety Report 16130876 (Version 9)
Quarter: 2020Q4

REPORT INFORMATION
  Report Type: Report from Study
  Country: US (occurrence: US)
  Receive Date: 20190328
  Receipt Date: 20201109
  Transmission Date: 20210113
  Serious: Yes (Other)
  Sender: FDA-Public Use
  Company Number: PHHY2018US201317

PATIENT
  Age: 12 Year
  Sex: Male

DRUGS (3)
  1. KYMRIAH [Suspect]
     Active Substance: TISAGENLECLEUCEL
     Indication: B-CELL TYPE ACUTE LEUKAEMIA
     Dosage: ONCE/SINGLE
     Route: 041
     Dates: start: 20180501
  2. CYCLOPHOSPHAMIDE. [Concomitant]
     Active Substance: CYCLOPHOSPHAMIDE
     Indication: CHEMOTHERAPY
     Dosage: UNK
     Route: 065
  3. FLUDARABINE [Concomitant]
     Active Substance: FLUDARABINE PHOSPHATE
     Indication: CHEMOTHERAPY
     Dosage: UNK
     Route: 065

REACTIONS (9)
  - Hypogammaglobulinaemia [Recovered/Resolved]
  - Lymphocyte count decreased [Recovered/Resolved]
  - Haematocrit decreased [Unknown]
  - Platelet count decreased [Unknown]
  - White blood cell count decreased [Recovered/Resolved]
  - Neurotoxicity [Recovered/Resolved]
  - Cytokine release syndrome [Recovered/Resolved]
  - Aphasia [Unknown]
  - Pyrexia [Unknown]
